FAERS Safety Report 4315295-2 (Version None)
Quarter: 2004Q1

REPORT INFORMATION
  Report Type: 
  Country: None (occurrence: None)
  Receive Date: 20040309
  Receipt Date: 20040224
  Transmission Date: 20041129
  Serious: Yes (Hospitalization, Other)
  Sender: FDA-Public Use
  Company Number: USA040260161

PATIENT
  Age: 65 Year
  Sex: Female

DRUGS (1)
  1. HUMULIN 70/30 [Suspect]
     Indication: DIABETES MELLITUS
     Dosage: 30 U DAY
     Route: 058
     Dates: start: 19950101

REACTIONS (1)
  - CORONARY ARTERY SURGERY [None]
